FAERS Safety Report 8511187-3 (Version None)
Quarter: 2012Q3

REPORT INFORMATION
  Report Type: 
  Country: None (occurrence: None)
  Receive Date: 20120716
  Receipt Date: 20120713
  Transmission Date: 20120928
  Serious: Yes (Other)
  Sender: FDA-Public Use
  Company Number: US-BAYER-2012-070050

PATIENT
  Age: 88 Year
  Sex: Female
  Weight: 63.492 kg

DRUGS (3)
  1. MAGNEVIST [Suspect]
     Indication: BREAST CANCER
  2. MAGNEVIST [Suspect]
     Indication: NUCLEAR MAGNETIC RESONANCE IMAGING BRAIN
     Dosage: 13 ML, ONCE
     Route: 042
     Dates: start: 20120713, end: 20120713
  3. MAGNEVIST [Suspect]
     Indication: DYSARTHRIA

REACTIONS (4)
  - OROPHARYNGEAL DISCOMFORT [None]
  - FEELING HOT [None]
  - LIP SWELLING [None]
  - PRURITUS GENERALISED [None]
